FAERS Safety Report 9352400 (Version 4)
Quarter: 2013Q3

REPORT INFORMATION
  Report Type: Spontaneous
  Country: JP (occurrence: JP)
  Receive Date: 20130617
  Receipt Date: 20130801
  Transmission Date: 20140515
  Serious: Yes (Other)
  Sender: FDA-Public Use
  Company Number: JP-ELI_LILLY_AND_COMPANY-JP201306001928

PATIENT
  Age: 77 Year
  Sex: Female
  Weight: 45 kg

DRUGS (4)
  1. FORTEO [Suspect]
     Indication: OSTEOPOROSIS
     Dosage: 20 UG, QD
     Route: 058
     Dates: start: 20120925, end: 20130419
  2. ALFAROL [Concomitant]
     Dosage: 0.25 UG, QD
     Route: 048
     Dates: start: 20121213, end: 20130108
  3. GLAKAY [Concomitant]
     Dosage: 15 MG, TID
     Route: 048
     Dates: start: 20130109, end: 20130418
  4. ROCALTROL [Concomitant]
     Dosage: UNK
     Route: 048
     Dates: end: 20121212

REACTIONS (2)
  - Tetany [Recovered/Resolved]
  - Hypocalcaemia [Not Recovered/Not Resolved]
